FAERS Safety Report 24105147 (Version 1)
Quarter: 2024Q3

REPORT INFORMATION
  Report Type: Spontaneous
  Country: US (occurrence: None)
  Receive Date: 20240716
  Receipt Date: 20240716
  Transmission Date: 20241017
  Serious: No
  Sender: Public
  Company Number: None

PATIENT
  Age: 64 Year
  Sex: Female
  Weight: 94.05 kg

DRUGS (8)
  1. DUPIXENT [Suspect]
     Active Substance: DUPILUMAB
     Indication: Asthma
     Dosage: OTHER FREQUENCY : ONE SHOT A WEEK;?
     Route: 058
     Dates: start: 20240627, end: 20240715
  2. OMEPRAZOLE [Concomitant]
     Active Substance: OMEPRAZOLE
  3. albutrol [Concomitant]
  4. brezzi [Concomitant]
  5. Premarin crestor [Concomitant]
  6. 81 mg aspirin [Concomitant]
  7. SINGULAIR [Concomitant]
     Active Substance: MONTELUKAST SODIUM
  8. Multivitamin [Concomitant]

REACTIONS (8)
  - Myalgia [None]
  - Arthralgia [None]
  - Toothache [None]
  - Eye irritation [None]
  - Oropharyngeal pain [None]
  - Musculoskeletal stiffness [None]
  - Renal pain [None]
  - Burning sensation [None]

NARRATIVE: CASE EVENT DATE: 20240702
